FAERS Safety Report 5037592-8 (Version None)
Quarter: 2006Q2

REPORT INFORMATION
  Report Type: 
  Country: None (occurrence: None)
  Receive Date: 20060607
  Receipt Date: 20060306
  Transmission Date: 20061013
  Serious: No
  Sender: FDA-Public Use
  Company Number: 34167

PATIENT
  Sex: 0

DRUGS (1)
  1. NEVANAC [Suspect]
     Indication: PROPHYLAXIS

REACTIONS (1)
  - THERAPEUTIC RESPONSE DELAYED [None]
